FAERS Safety Report 17967719 (Version 2)
Quarter: 2020Q3

REPORT INFORMATION
  Report Type: Spontaneous
  Country: US (occurrence: US)
  Receive Date: 20200701
  Receipt Date: 20200921
  Transmission Date: 20201103
  Serious: No
  Sender: FDA-Public Use
  Company Number: US-PFIZER INC-2020252510

PATIENT
  Age: 78 Year
  Sex: Male
  Weight: 74.39 kg

DRUGS (2)
  1. TORISEL [Suspect]
     Active Substance: TEMSIROLIMUS
     Dosage: UNK (INFUSED EVERY THURSDAY)
     Route: 042
     Dates: start: 2020
  2. TORISEL [Suspect]
     Active Substance: TEMSIROLIMUS
     Indication: BONE CANCER
     Dosage: 25 MG

REACTIONS (2)
  - Bradyphrenia [Unknown]
  - Fatigue [Unknown]
